FAERS Safety Report 7340615-4 (Version None)
Quarter: 2011Q1

REPORT INFORMATION
  Report Type: 
  Country: None (occurrence: None)
  Receive Date: 20110301
  Receipt Date: 20110214
  Transmission Date: 20110831
  Serious: Yes (Other)
  Sender: FDA-Public Use
  Company Number: 2011P1004442

PATIENT
  Age: 14 Year
  Sex: Male
  Weight: 82 kg

DRUGS (1)
  1. AMPHETAMINE SULFATE TAB [Suspect]
     Indication: ATTENTION DEFICIT/HYPERACTIVITY DISORDER
     Dosage: 10 MG;TID;
     Dates: start: 20110209, end: 20110209

REACTIONS (6)
  - TOXICITY TO VARIOUS AGENTS [None]
  - RESTLESSNESS [None]
  - IRRITABILITY [None]
  - EYE DISORDER [None]
  - DRY MOUTH [None]
  - PRODUCT SUBSTITUTION ISSUE [None]
